FAERS Safety Report 16049147 (Version 1)
Quarter: 2019Q1

REPORT INFORMATION
  Report Type: Spontaneous
  Country: DE (occurrence: DE)
  Receive Date: 20190307
  Receipt Date: 20190307
  Transmission Date: 20190418
  Serious: Yes (Hospitalization, Disabling, Other)
  Sender: FDA-Public Use
  Company Number: DE-BAYER-2019-046764

PATIENT
  Age: 24 Year
  Sex: Female
  Weight: 67 kg

DRUGS (1)
  1. MIRENA [Suspect]
     Active Substance: LEVONORGESTREL
     Dosage: 20 MCG/24HR, CONT
     Route: 015
     Dates: start: 20140416, end: 20170810

REACTIONS (8)
  - Suicide attempt [None]
  - Depression [None]
  - Menstruation irregular [None]
  - Vaginal discharge [None]
  - Migraine [None]
  - Intentional self-injury [None]
  - Infertility female [None]
  - Abdominal pain upper [None]

NARRATIVE: CASE EVENT DATE: 20140420
